FAERS Safety Report 24837715 (Version 1)
Quarter: 2025Q1

REPORT INFORMATION
  Report Type: Spontaneous
  Country: US (occurrence: None)
  Receive Date: 20250112
  Receipt Date: 20250112
  Transmission Date: 20250409
  Serious: Yes (Disabling)
  Sender: FDA-CTU
  Company Number: None

PATIENT
  Age: 52 Year
  Sex: Female
  Weight: 74.25 kg

DRUGS (1)
  1. SEMAGLUTIDE [Suspect]
     Active Substance: SEMAGLUTIDE
     Dates: start: 20230215

REACTIONS (4)
  - Balance disorder [None]
  - Hypoacusis [None]
  - Deafness bilateral [None]
  - Labyrinthitis [None]

NARRATIVE: CASE EVENT DATE: 20240807
